FAERS Safety Report 12565165 (Version 1)
Quarter: 2016Q3

REPORT INFORMATION
  Report Type: Spontaneous
  Country: None (occurrence: None)
  Receive Date: 20160715
  Receipt Date: 20160715
  Transmission Date: 20161109
  Serious: Yes (Hospitalization)
  Sender: FDA-Public Use
  Company Number: None

PATIENT
  Age: 89 Year
  Sex: Male
  Weight: 81 kg

DRUGS (1)
  1. MIRABEGRON, 50MG [Suspect]
     Active Substance: MIRABEGRON
     Indication: HYPERTONIC BLADDER
     Route: 048

REACTIONS (3)
  - Mental status changes [None]
  - Systemic inflammatory response syndrome [None]
  - Urinary tract infection [None]

NARRATIVE: CASE EVENT DATE: 20160713
